FAERS Safety Report 9246222 (Version 1)
Quarter: 2013Q2

REPORT INFORMATION
  Report Type: Spontaneous
  Country: DE (occurrence: DE)
  Receive Date: 20130422
  Receipt Date: 20130422
  Transmission Date: 20140414
  Serious: Yes (Other)
  Sender: FDA-Public Use
  Company Number: DE-BAXTER-2013BAX014029

PATIENT
  Age: 30 Year
  Sex: Female

DRUGS (4)
  1. ENDOXAN 1G [Suspect]
     Indication: BREAST CANCER
     Route: 065
     Dates: start: 20130123
  2. ENDOXAN 1G [Suspect]
     Route: 065
     Dates: start: 20130328
  3. EPIRUBICIN [Suspect]
     Indication: BREAST CANCER
     Route: 065
     Dates: start: 20130123
  4. EPIRUBICIN [Suspect]
     Route: 065
     Dates: start: 20130328

REACTIONS (2)
  - Exposure during pregnancy [Unknown]
  - No adverse event [Unknown]
